FAERS Safety Report 11196737 (Version 1)
Quarter: 2015Q2

REPORT INFORMATION
  Report Type: Spontaneous
  Country: US (occurrence: US)
  Receive Date: 20150617
  Receipt Date: 20150617
  Transmission Date: 20150821
  Serious: Yes (Other)
  Sender: FDA-Public Use
  Company Number: US-PFIZER INC-2015202490

PATIENT
  Age: 54 Year
  Sex: Female

DRUGS (6)
  1. PREDNISONE. [Suspect]
     Active Substance: PREDNISONE
     Dosage: 60 MG, DAILY
  2. PANTOPRAZOLE [Suspect]
     Active Substance: PANTOPRAZOLE SODIUM
     Dosage: 40 MG, 2X/DAY
     Route: 048
     Dates: start: 20150528
  3. VORICONAZOLE. [Suspect]
     Active Substance: VORICONAZOLE
     Dosage: 200 MG, 2X/DAY
     Route: 048
  4. PREDNISONE. [Suspect]
     Active Substance: PREDNISONE
     Dosage: 60 MG, 2X/DAY (5 DAYS)
  5. PREDNISONE. [Suspect]
     Active Substance: PREDNISONE
     Dosage: 10 MG, UNK
     Dates: start: 20150513
  6. PREDNISONE. [Suspect]
     Active Substance: PREDNISONE
     Dosage: 40 MG, 2X/DAY (FOR 5 DAYS )

REACTIONS (4)
  - Bronchiectasis [Unknown]
  - Rhinitis [Unknown]
  - Chronic sinusitis [Unknown]
  - Asthma [Unknown]
